FAERS Safety Report 8503194-1 (Version None)
Quarter: 2012Q2

REPORT INFORMATION
  Report Type: 
  Country: None (occurrence: None)
  Receive Date: 20120405
  Receipt Date: 20100526
  Transmission Date: 20120825
  Serious: Yes (Disabling)
  Sender: FDA-Public Use
  Company Number: PHHY2010US26149

PATIENT
  Age: 65 Year
  Sex: Female
  Weight: 77.6 kg

DRUGS (8)
  1. RECLAST [Suspect]
     Indication: OSTEOPENIA
     Dosage: 5  MG, ONCE/SINGLE, INTRAVENOUS
     Route: 042
     Dates: start: 20100419
  2. COREG [Concomitant]
  3. RAMIPRIL [Concomitant]
  4. AMIODARONE HCL [Concomitant]
  5. CALCIUM CARBONATE [Concomitant]
  6. VITAMIN NOS (VITAMIN NOS) [Concomitant]
  7. FISH OIL (FISH OIL) [Concomitant]
  8. FUROSEMIDE (FUROSEMIDE) [Concomitant]

REACTIONS (2)
  - ARTHRALGIA [None]
  - BONE PAIN [None]
